FAERS Safety Report 4476984-2 (Version None)
Quarter: 2004Q4

REPORT INFORMATION
  Report Type: 
  Country: None (occurrence: None)
  Receive Date: 20041018
  Receipt Date: 20040917
  Transmission Date: 20050328
  Serious: Yes (Hospitalization)
  Sender: FDA-Public Use
  Company Number: FR-ABBOTT-04P-056-0274025-00

PATIENT
  Sex: Male

DRUGS (6)
  1. RITONAVIR SOFT GELATIN CAPSULES [Suspect]
     Indication: HIV INFECTION
     Route: 048
     Dates: start: 20031129
  2. TIPRANAVIR [Concomitant]
     Indication: HIV INFECTION
     Route: 048
     Dates: start: 20040329
  3. LAMIVUDINE [Concomitant]
     Indication: HIV INFECTION
     Route: 048
  4. VIREAD [Concomitant]
     Indication: HIV INFECTION
     Route: 048
  5. DIDANOSINE [Concomitant]
     Indication: HIV INFECTION
     Route: 048
  6. FUZEON [Concomitant]
     Indication: HIV INFECTION
     Route: 058

REACTIONS (2)
  - IMMUNE SYSTEM DISORDER [None]
  - PYREXIA [None]
